FAERS Safety Report 6086787-3 (Version None)
Quarter: 2009Q1

REPORT INFORMATION
  Report Type: 
  Country: None (occurrence: None)
  Receive Date: 20090213
  Receipt Date: 20090128
  Transmission Date: 20090719
  Serious: Yes (Death)
  Sender: FDA-Public Use
  Company Number: B0558074A

PATIENT
  Sex: 0

DRUGS (3)
  1. MELPHALAN (FORMULATION UNKNOWN) (GENERIC) (MELPHALAN) [Suspect]
     Indication: BONE MARROW TRANSPLANT
  2. CLOFARABINE ( FORMULATION UNKNOEN) (CLOFARABINE) [Suspect]
     Indication: BONE MARROW TRANSPLANT
  3. TACROLIMUS [Concomitant]

REACTIONS (1)
  - THERAPEUTIC AGENT TOXICITY [None]
